FAERS Safety Report 7479149-5 (Version None)
Quarter: 2011Q2

REPORT INFORMATION
  Report Type: 
  Country: None (occurrence: None)
  Receive Date: 20110513
  Receipt Date: 20110502
  Transmission Date: 20111010
  Serious: Yes (Other)
  Sender: FDA-Public Use
  Company Number: US-SHIONOGI, INC-2011000064

PATIENT

DRUGS (5)
  1. EPINEPHRINE [Suspect]
     Indication: DYSPNOEA
     Dosage: UNK
     Dates: start: 20091101, end: 20091101
  2. FLEXERIL [Concomitant]
  3. TRAMADOL HCL [Concomitant]
  4. HYDROCODONE BITARTRATE [Concomitant]
  5. NEURONTIN [Concomitant]

REACTIONS (3)
  - CYANOSIS [None]
  - ANXIETY [None]
  - PRODUCT QUALITY ISSUE [None]
